FAERS Safety Report 4846409-3 (Version None)
Quarter: 2005Q4

REPORT INFORMATION
  Report Type: 
  Country: None (occurrence: None)
  Receive Date: 20051202
  Receipt Date: 20050929
  Transmission Date: 20060501
  Serious: Yes (Hospitalization)
  Sender: FDA-Public Use
  Company Number: STA-AE-05-026

PATIENT
  Sex: Male

DRUGS (1)
  1. AMOXICILLIN [Suspect]
     Indication: RESPIRATORY TRACT INFECTION
     Dosage: 500 MG FOUR TIMES DAILY, ORAL
     Route: 048
     Dates: start: 20050910, end: 20050919

REACTIONS (4)
  - CONDITION AGGRAVATED [None]
  - DRUG INEFFECTIVE [None]
  - PNEUMONIA [None]
  - RESPIRATORY DISTRESS [None]
